FAERS Safety Report 9057388 (Version 1)
Quarter: 2013Q1

REPORT INFORMATION
  Report Type: Report from Study
  Country: DE (occurrence: DE)
  Receive Date: 20130204
  Receipt Date: 20130204
  Transmission Date: 20140127
  Serious: Yes (Other)
  Sender: FDA-Public Use
  Company Number: GXKR2013DE000722

PATIENT
  Sex: 0

DRUGS (7)
  1. PROMETHAZINE [Suspect]
     Indication: POST-TRAUMATIC STRESS DISORDER
     Dosage: MATERNAL DOSE: 25 [MG/D ]
     Route: 064
     Dates: start: 20110928, end: 20120621
  2. TAVOR [Suspect]
     Indication: POST-TRAUMATIC STRESS DISORDER
     Dosage: MATERNAL DOSE: 1 [MG/D]
     Route: 064
     Dates: start: 20110928, end: 20120621
  3. TREVILOR [Suspect]
     Indication: BORDERLINE PERSONALITY DISORDER
     Dosage: MATERNAL DOSE: 50 [MG/D ]/ REDUCED DOSAGE FROM GW 5+2 (75MG/D)
     Route: 064
     Dates: start: 20110928, end: 20120621
  4. BUSPIRONE [Concomitant]
     Indication: POST-TRAUMATIC STRESS DISORDER
     Dosage: MATERNAL DOSE: 20 [MG/D (5-5-10) ]
     Route: 064
     Dates: start: 20110928, end: 20111024
  5. LYRICA [Concomitant]
     Indication: BORDERLINE PERSONALITY DISORDER
     Dosage: MATERNAL DOSE: 225 [MG/D ]
     Route: 064
     Dates: start: 20110928, end: 20111027
  6. FOLIC ACID [Concomitant]
     Indication: PROPHYLAXIS OF NEURAL TUBE DEFECT
     Dosage: MATERNAL DOSE: 0.4 [MG/D ]
     Route: 064
     Dates: start: 20111025, end: 20120621
  7. MOVICOL [Concomitant]
     Indication: CONSTIPATION
     Route: 064
     Dates: start: 20111028, end: 20120621

REACTIONS (3)
  - Neonatal respiratory distress syndrome [Recovered/Resolved]
  - Bradycardia neonatal [Recovered/Resolved]
  - Low birth weight baby [Recovered/Resolved]
